FAERS Safety Report 5666820-0 (Version None)
Quarter: 2008Q1

REPORT INFORMATION
  Report Type: 
  Country: None (occurrence: None)
  Receive Date: 20080315
  Receipt Date: 20071221
  Transmission Date: 20080703
  Serious: No
  Sender: FDA-Public Use
  Company Number: US-ABBOTT-08P-163-0432026-00

PATIENT
  Sex: Female
  Weight: 91.36 kg

DRUGS (5)
  1. HUMIRA [Suspect]
     Indication: RHEUMATOID ARTHRITIS
     Dosage: STOMACH
     Route: 058
     Dates: start: 20071124
  2. HUMIRA [Suspect]
     Dosage: THIGH
     Route: 058
     Dates: start: 20071211, end: 20071211
  3. HUMIRA [Suspect]
     Dosage: THIGH
     Route: 058
     Dates: start: 20071226
  4. METHYLPREDNISOLONE [Concomitant]
     Indication: DRUG USE FOR UNKNOWN INDICATION
  5. OTHER MEDICATIONS COULD NOT LIST [Concomitant]
     Indication: DRUG USE FOR UNKNOWN INDICATION

REACTIONS (4)
  - FATIGUE [None]
  - INJECTION SITE IRRITATION [None]
  - INJECTION SITE PAIN [None]
  - INJECTION SITE RASH [None]
